FAERS Safety Report 12297466 (Version 1)
Quarter: 2016Q2

REPORT INFORMATION
  Report Type: Spontaneous
  Country: US (occurrence: US)
  Receive Date: 20160422
  Receipt Date: 20160422
  Transmission Date: 20160815
  Serious: No
  Sender: FDA-Public Use
  Company Number: US-PERRIGO-16US013975

PATIENT
  Age: 35 Year
  Sex: Female
  Weight: 81.18 kg

DRUGS (3)
  1. CLOBETASOL PROPIONATE. [Suspect]
     Active Substance: CLOBETASOL PROPIONATE
     Dosage: UNKNOWN AMOUNT OF LIQUID, BID
     Route: 061
     Dates: start: 201601, end: 201601
  2. CLOBETASOL PROPIONATE. [Suspect]
     Active Substance: CLOBETASOL PROPIONATE
     Dosage: UNKNOWN, BID
     Route: 061
     Dates: start: 2016
  3. CLOBETASOL PROPIONATE. [Suspect]
     Active Substance: CLOBETASOL PROPIONATE
     Indication: PSORIASIS
     Dosage: UNKNOWN, BID
     Route: 061
     Dates: start: 201601, end: 201601

REACTIONS (2)
  - Application site pain [Recovered/Resolved]
  - Wrong technique in product usage process [Recovered/Resolved]

NARRATIVE: CASE EVENT DATE: 201601
